FAERS Safety Report 22594645 (Version 3)
Quarter: 2023Q2

REPORT INFORMATION
  Report Type: Spontaneous
  Country: MX (occurrence: MX)
  Receive Date: 20230613
  Receipt Date: 20230615
  Transmission Date: 20230722
  Serious: Yes (Life-Threatening, Other)
  Sender: FDA-Public Use
  Company Number: MX-LUNDBECK-DKLU3063222

PATIENT
  Age: 12 Year
  Sex: Male
  Weight: 55 kg

DRUGS (7)
  1. CLOBAZAM [Suspect]
     Active Substance: CLOBAZAM
     Indication: Partial seizures
     Route: 048
     Dates: start: 2010
  2. CLOBAZAM [Suspect]
     Active Substance: CLOBAZAM
     Indication: Epilepsy
     Route: 048
  3. CLOBAZAM [Suspect]
     Active Substance: CLOBAZAM
     Route: 048
     Dates: start: 201704
  4. LACOSAMIDE [Suspect]
     Active Substance: LACOSAMIDE
     Indication: Seizure
     Route: 048
  5. LACOSAMIDE [Suspect]
     Active Substance: LACOSAMIDE
     Route: 048
     Dates: start: 20230424
  6. TRILEPTAL [Suspect]
     Active Substance: OXCARBAZEPINE
     Indication: Epilepsy
     Route: 048
     Dates: start: 201704, end: 2021
  7. TRILEPTAL [Suspect]
     Active Substance: OXCARBAZEPINE
     Route: 048
     Dates: start: 202104, end: 2021

REACTIONS (7)
  - Partial seizures [Recovering/Resolving]
  - Condition aggravated [Recovering/Resolving]
  - Muscle spasms [Recovering/Resolving]
  - Fall [Recovering/Resolving]
  - Headache [Recovering/Resolving]
  - Product use issue [Unknown]
  - Wrong technique in product usage process [Unknown]

NARRATIVE: CASE EVENT DATE: 20230101
